FAERS Safety Report 8155930-4 (Version None)
Quarter: 2012Q1

REPORT INFORMATION
  Report Type: 
  Country: None (occurrence: None)
  Receive Date: 20120221
  Receipt Date: 20120221
  Transmission Date: 20120608
  Serious: Yes (Life-Threatening, Other)
  Sender: FDA-Public Use
  Company Number: None

PATIENT
  Age: 21 Year
  Sex: Female
  Weight: 54.4316 kg

DRUGS (1)
  1. PROMETHAZINE [Suspect]
     Indication: NAUSEA
     Dosage: 25MG TABLET 4-6 HOURS AS NEEDED ORAL
     Route: 048
     Dates: start: 20120105, end: 20120121

REACTIONS (8)
  - ANXIETY [None]
  - DRUG INEFFECTIVE [None]
  - DEPRESSION [None]
  - SUICIDAL IDEATION [None]
  - PANIC ATTACK [None]
  - INTENTIONAL SELF-INJURY [None]
  - OCULOGYRIC CRISIS [None]
  - NERVOUS SYSTEM DISORDER [None]
